FAERS Safety Report 23123056 (Version 6)
Quarter: 2023Q4

REPORT INFORMATION
  Report Type: Report from Study
  Country: US (occurrence: US)
  Receive Date: 20231030
  Receipt Date: 20231213
  Transmission Date: 20240110
  Serious: No
  Sender: FDA-Public Use
  Company Number: US-002147023-NVSC2023US229624

PATIENT
  Age: 51 Year

DRUGS (1)
  1. KESIMPTA [Suspect]
     Active Substance: OFATUMUMAB
     Indication: Product used for unknown indication
     Dosage: UNK
     Route: 065
     Dates: start: 20230905

REACTIONS (7)
  - Injection site haemorrhage [Unknown]
  - Gait disturbance [Unknown]
  - Muscle spasms [Unknown]
  - Abdominal pain upper [Unknown]
  - Vomiting [Unknown]
  - Vertigo [Unknown]
  - Dizziness [Unknown]

NARRATIVE: CASE EVENT DATE: 20231001
